FAERS Safety Report 17778204 (Version 1)
Quarter: 2020Q2

REPORT INFORMATION
  Report Type: Spontaneous
  Country: DE (occurrence: DE)
  Receive Date: 20200513
  Receipt Date: 20200513
  Transmission Date: 20200714
  Serious: Yes (Hospitalization)
  Sender: FDA-Public Use
  Company Number: DE-GALDERMA-DE2020022364

PATIENT
  Age: 50 Year
  Sex: Female

DRUGS (3)
  1. METRONIDAZOLE. [Suspect]
     Active Substance: METRONIDAZOLE
     Indication: PRODUCT USED FOR UNKNOWN INDICATION
     Route: 065
     Dates: start: 20200122
  2. FLUTICASON/SALMETEROL [Concomitant]
     Indication: PRODUCT USED FOR UNKNOWN INDICATION
     Dosage: 250/50?G
     Route: 065
  3. CEFPODOXIM [Concomitant]
     Active Substance: CEFPODOXIME PROXETIL
     Indication: PRODUCT USED FOR UNKNOWN INDICATION
     Route: 065
     Dates: start: 20200122

REACTIONS (8)
  - Hyperhidrosis [Unknown]
  - Swollen tongue [Unknown]
  - Periorbital oedema [Unknown]
  - Oropharyngeal swelling [Unknown]
  - Nausea [Unknown]
  - Dry skin [Unknown]
  - Dizziness [Unknown]
  - Feeling hot [Unknown]
